FAERS Safety Report 10378120 (Version 2)
Quarter: 2014Q4

REPORT INFORMATION
  Report Type: Spontaneous
  Country: DK (occurrence: DK)
  Receive Date: 20140812
  Receipt Date: 20141226
  Transmission Date: 20150528
  Serious: Yes (Hospitalization, Other)
  Sender: FDA-Public Use
  Company Number: DK-SA-2014SA105619

PATIENT
  Age: 70 Year
  Sex: Male

DRUGS (9)
  1. FLUDARA [Suspect]
     Active Substance: FLUDARABINE PHOSPHATE
     Indication: CHRONIC LYMPHOCYTIC LEUKAEMIA
     Dosage: STYRKE: 10 MG.?FREQUENCY-EVERY 4 WEEKS.?CUMULATIVE DOSE:2547.94642 MG
     Dates: start: 20100930, end: 20101031
  2. LEVACT [Suspect]
     Active Substance: BENDAMUSTINE HYDROCHLORIDE
     Indication: CHRONIC LYMPHOCYTIC LEUKAEMIA
     Dosage: STYRKE: 2,5 MG/ML?FREQUENCY-EVERY 4 WEEKS?FORM:POWDER FOR CONCENTRATE FOR SOLUTION FOR INFUSION
     Route: 042
     Dates: start: 20110701, end: 20111123
  3. CAELYX [Suspect]
     Active Substance: DOXORUBICIN HYDROCHLORIDE
     Indication: CHRONIC LYMPHOCYTIC LEUKAEMIA
     Route: 042
     Dates: start: 20130828, end: 20130918
  4. MABTHERA [Suspect]
     Active Substance: RITUXIMAB
     Indication: CHRONIC LYMPHOCYTIC LEUKAEMIA
     Dosage: FREQUENCY-EVERY 4 WEEKS.
     Route: 042
     Dates: start: 20110701, end: 20111123
  5. ADRIAMYCIN [Suspect]
     Active Substance: DOXORUBICIN HYDROCHLORIDE
     Indication: DIFFUSE LARGE B-CELL LYMPHOMA
     Dosage: CUMULATIVE DOSE:1320.21825 MG
     Route: 042
     Dates: start: 20130424, end: 20130807
  6. ONCOVIN [Suspect]
     Active Substance: VINCRISTINE SULFATE
     Indication: DIFFUSE LARGE B-CELL LYMPHOMA
     Dosage: STYRKE: 1MG/ML.?DOSE- 1OR 2 MG
     Route: 042
     Dates: start: 20130424, end: 20130918
  7. MABTHERA [Suspect]
     Active Substance: RITUXIMAB
     Indication: CHRONIC LYMPHOCYTIC LEUKAEMIA
     Dosage: FREQUENCY-EVERY 4 WEEKS.
     Route: 042
     Dates: start: 20100819, end: 20110203
  8. SENDOXAN [Suspect]
     Active Substance: CYCLOPHOSPHAMIDE
     Indication: CHRONIC LYMPHOCYTIC LEUKAEMIA
     Dosage: FREQUENCY-EVERY 4 WEEKS
     Route: 048
     Dates: start: 20100819, end: 20110203
  9. MABTHERA [Suspect]
     Active Substance: RITUXIMAB
     Indication: CHRONIC LYMPHOCYTIC LEUKAEMIA
     Route: 042
     Dates: start: 20130423, end: 20130918

REACTIONS (14)
  - Cardiomyopathy [Not Recovered/Not Resolved]
  - Pneumonia [Unknown]
  - Pleural effusion [Recovered/Resolved]
  - Lung infiltration [Recovered/Resolved with Sequelae]
  - Atrial fibrillation [Recovered/Resolved]
  - Pulmonary function test decreased [Unknown]
  - Cardiac failure [Not Recovered/Not Resolved]
  - Dyspnoea [Unknown]
  - Pyrexia [Unknown]
  - Respiratory failure [Not Recovered/Not Resolved]
  - Clostridium difficile colitis [Unknown]
  - Lung disorder [Unknown]
  - Liver disorder [Unknown]
  - Febrile neutropenia [Unknown]

NARRATIVE: CASE EVENT DATE: 2012
